FAERS Safety Report 16399184 (Version 1)
Quarter: 2019Q3

REPORT INFORMATION
  Report Type: Spontaneous
  Country: US (occurrence: US)
  Receive Date: 20190605
  Receipt Date: 20190605
  Transmission Date: 20191004
  Serious: Yes (Life-Threatening)
  Sender: FDA-Public Use
  Company Number: None

PATIENT
  Age: 51 Year
  Sex: Female
  Weight: 56.7 kg

DRUGS (2)
  1. OPTIMARK [Suspect]
     Active Substance: GADOVERSETAMIDE
  2. UNKNOWN GADOLINIUM BASED CONTRAST AGENT (GBCA) [Suspect]
     Active Substance: GADOLINIUM

REACTIONS (4)
  - Tinnitus [None]
  - Diplopia [None]
  - Contrast media toxicity [None]
  - Muscle twitching [None]

NARRATIVE: CASE EVENT DATE: 20170713
